FAERS Safety Report 7408718-3 (Version None)
Quarter: 2011Q2

REPORT INFORMATION
  Report Type: 
  Country: None (occurrence: None)
  Receive Date: 20110412
  Receipt Date: 20110404
  Transmission Date: 20111010
  Serious: Yes (Life-Threatening, Hospitalization)
  Sender: FDA-Public Use
  Company Number: JP-BRISTOL-MYERS SQUIBB COMPANY-15630494

PATIENT
  Age: 41 Year
  Sex: Male
  Weight: 61 kg

DRUGS (4)
  1. ZYPREXA [Suspect]
     Indication: SCHIZOPHRENIA
     Dosage: TABS
     Route: 048
     Dates: start: 20110314, end: 20110315
  2. URSO 250 [Concomitant]
     Dosage: TABS
     Dates: start: 20110315, end: 20110317
  3. ABILIFY [Suspect]
     Indication: SCHIZOPHRENIA
     Route: 048
     Dates: start: 20110316, end: 20110316
  4. ALINAMIN-F [Concomitant]
     Dosage: TABS
     Dates: start: 20110314, end: 20110317

REACTIONS (3)
  - DEPRESSED LEVEL OF CONSCIOUSNESS [None]
  - RESPIRATORY DEPRESSION [None]
  - SALIVARY HYPERSECRETION [None]
